FAERS Safety Report 4349741-5 (Version None)
Quarter: 2004Q2

REPORT INFORMATION
  Report Type: 
  Country: None (occurrence: None)
  Receive Date: 20040426
  Receipt Date: 20040413
  Transmission Date: 20050107
  Serious: Yes (Death, Hospitalization, Other)
  Sender: FDA-Public Use
  Company Number: 2002062654

PATIENT
  Age: 54 Year
  Sex: Female

DRUGS (15)
  1. TROVAN [Suspect]
     Indication: WOUND INFECTION
     Dosage: 200 MG (DAILY), ORAL
     Route: 048
     Dates: start: 19990415, end: 19990401
  2. REZULIN [Suspect]
     Indication: DIABETES MELLITUS NON-INSULIN-DEPENDENT
     Dosage: 200 MG (DAILY), ORAL
     Route: 048
     Dates: start: 19980624, end: 19981216
  3. TRETINOIN [Concomitant]
  4. MEDROXYPROGESTERONE [Concomitant]
  5. TRAZODONE HCL [Concomitant]
  6. FLUOXETINE [Concomitant]
  7. GLIPIZIDE [Concomitant]
  8. METFORMIN (METFORMIN) [Concomitant]
  9. LISINOPRIL [Concomitant]
  10. ESTRADIOL [Concomitant]
  11. IBUPROFEN [Concomitant]
  12. INSULIN [Concomitant]
  13. NIZATIDINE [Concomitant]
  14. HYDROXYZINE [Concomitant]
  15. KAOPECTATE (KAOLIN, PECTIN) [Concomitant]

REACTIONS (41)
  - ANOREXIA [None]
  - ASTHENIA [None]
  - ATELECTASIS [None]
  - AUTOIMMUNE HEPATITIS [None]
  - BACK PAIN [None]
  - BLOOD CALCIUM DECREASED [None]
  - CARDIOMYOPATHY [None]
  - CARDIOVASCULAR DISORDER [None]
  - CELLULITIS [None]
  - CHEST X-RAY ABNORMAL [None]
  - CONDITION AGGRAVATED [None]
  - CONJUNCTIVITIS [None]
  - CONSTIPATION [None]
  - CULTURE URINE POSITIVE [None]
  - DEHYDRATION [None]
  - FLUID INTAKE REDUCED [None]
  - GASTROINTESTINAL HAEMORRHAGE [None]
  - GASTROOESOPHAGEAL REFLUX DISEASE [None]
  - GENERAL PHYSICAL HEALTH DETERIORATION [None]
  - HEART RATE INCREASED [None]
  - HEPATIC ENCEPHALOPATHY [None]
  - HEPATIC FAILURE [None]
  - HEPATOTOXICITY [None]
  - HYPOGLYCAEMIA [None]
  - HYPOKALAEMIA [None]
  - HYPOTENSION [None]
  - LEUKOCYTOCLASTIC VASCULITIS [None]
  - MALNUTRITION [None]
  - MASS [None]
  - MEASLES [None]
  - NAUSEA [None]
  - PAINFUL DEFAECATION [None]
  - PERICARDIAL EFFUSION [None]
  - PNEUMONIA KLEBSIELLA [None]
  - POSTOPERATIVE INFECTION [None]
  - SEPSIS [None]
  - SHIFT TO THE LEFT [None]
  - SLEEP DISORDER [None]
  - TUBERCULOSIS [None]
  - VASCULAR BYPASS GRAFT [None]
  - VIRAL INFECTION [None]
